FAERS Safety Report 6116857-2 (Version None)
Quarter: 2009Q1

REPORT INFORMATION
  Report Type: 
  Country: None (occurrence: None)
  Receive Date: 20090314
  Receipt Date: 20081225
  Transmission Date: 20090719
  Serious: No
  Sender: FDA-Public Use
  Company Number: US-ABBOTT-08P-163-0495130-00

PATIENT
  Sex: Female

DRUGS (2)
  1. HUMIRA [Suspect]
     Indication: RHEUMATOID ARTHRITIS
     Route: 058
     Dates: start: 20070101, end: 20071215
  2. MOTRIN [Concomitant]
     Indication: PAIN
     Dosage: UNKNOWN
     Dates: start: 20080926

REACTIONS (5)
  - ARTHRALGIA [None]
  - HUMAN PAPILLOMA VIRUS TEST POSITIVE [None]
  - NORMAL NEWBORN [None]
  - RASH [None]
  - WRIST DEFORMITY [None]
